FAERS Safety Report 21479848 (Version 1)
Quarter: 2022Q4

REPORT INFORMATION
  Report Type: Spontaneous
  Country: US (occurrence: US)
  Receive Date: 20221019
  Receipt Date: 20221019
  Transmission Date: 20230113
  Serious: No
  Sender: FDA-Public Use
  Company Number: US-UROGEN PHARMA LTD.-2022-UGN-000103

PATIENT

DRUGS (8)
  1. JELMYTO [Suspect]
     Active Substance: MITOMYCIN
     Indication: Transitional cell cancer of the renal pelvis and ureter
     Dosage: 1 MG (INSTILLATION)
     Dates: start: 20210517, end: 20210517
  2. JELMYTO [Suspect]
     Active Substance: MITOMYCIN
     Dosage: 1 MG (INSTILLATION)
     Dates: start: 20210524, end: 20210524
  3. JELMYTO [Suspect]
     Active Substance: MITOMYCIN
     Dosage: 1 MG (INSTILLATION)
     Dates: start: 20210602, end: 20210602
  4. JELMYTO [Suspect]
     Active Substance: MITOMYCIN
     Dosage: 1 MG (INSTILLATION)
     Dates: start: 20210607, end: 20210607
  5. JELMYTO [Suspect]
     Active Substance: MITOMYCIN
     Dosage: 1 MG (INSTILLATION)
     Dates: start: 20210614, end: 20210614
  6. JELMYTO [Suspect]
     Active Substance: MITOMYCIN
     Dosage: 1 MG (INSTILLATION)
     Dates: start: 20220523, end: 20220523
  7. JELMYTO [Suspect]
     Active Substance: MITOMYCIN
     Dosage: 1 MG (INSTILLATION)
     Dates: start: 20220620, end: 20220620
  8. JELMYTO [Suspect]
     Active Substance: MITOMYCIN
     Dosage: 1 MG (INSTILLATION)
     Dates: start: 20220718, end: 20220718

REACTIONS (1)
  - Haematuria [Unknown]

NARRATIVE: CASE EVENT DATE: 20220101
